FAERS Safety Report 11540743 (Version 1)
Quarter: 2015Q3

REPORT INFORMATION
  Report Type: Spontaneous
  Country: US (occurrence: US)
  Receive Date: 20150923
  Receipt Date: 20150923
  Transmission Date: 20151125
  Serious: Yes (Hospitalization, Other)
  Sender: FDA-Public Use
  Company Number: US-GLAXOSMITHKLINE-US2015GSK135281

PATIENT
  Age: 13 Year
  Sex: Female

DRUGS (5)
  1. ALBUTEROL. [Suspect]
     Active Substance: ALBUTEROL
     Indication: ASTHMA
     Dosage: SEE TEXT
  2. MAGNESIUM SULFATE. [Concomitant]
     Active Substance: MAGNESIUM SULFATE
     Indication: STATUS ASTHMATICUS
     Route: 042
  3. DEXAMETHASONE. [Concomitant]
     Active Substance: DEXAMETHASONE
     Indication: ASTHMA
     Dosage: 10 MG, UNK
     Route: 042
  4. SOLU-MEDROL [Concomitant]
     Active Substance: METHYLPREDNISOLONE SODIUM SUCCINATE
     Indication: STATUS ASTHMATICUS
     Dosage: 60 MG, UNK
     Route: 042
  5. ALBUTEROL. [Suspect]
     Active Substance: ALBUTEROL
     Dosage: UNK

REACTIONS (7)
  - Diastolic hypotension [Recovered/Resolved]
  - Chest pain [Unknown]
  - Blood pressure decreased [Recovered/Resolved]
  - Dizziness [Unknown]
  - Lactic acidosis [Recovered/Resolved]
  - Chest discomfort [Unknown]
  - Heart rate increased [Unknown]
